FAERS Safety Report 21161986 (Version 1)
Quarter: 2022Q3

REPORT INFORMATION
  Report Type: Spontaneous
  Country: GR (occurrence: GR)
  Receive Date: 20220802
  Receipt Date: 20220802
  Transmission Date: 20221026
  Serious: Yes (Other)
  Sender: FDA-Public Use
  Company Number: None

PATIENT
  Age: 25 Year
  Sex: Male

DRUGS (2)
  1. ZYPREXA [Suspect]
     Active Substance: OLANZAPINE
     Indication: Affect lability
     Dosage: 2 TABS PER DAY
     Route: 048
     Dates: start: 20220710
  2. VALPROATE SODIUM [Suspect]
     Active Substance: VALPROATE SODIUM
     Indication: Affect lability
     Dosage: 1 TAB PER DAY (NIGHT ADMINISTRATION OF THE DRUG)
     Route: 048
     Dates: start: 20220710

REACTIONS (2)
  - Abnormal dreams [Not Recovered/Not Resolved]
  - Sleep paralysis [Not Recovered/Not Resolved]

NARRATIVE: CASE EVENT DATE: 20220710
